FAERS Safety Report 4398263-4 (Version None)
Quarter: 2004Q3

REPORT INFORMATION
  Report Type: 
  Country: None (occurrence: None)
  Receive Date: 20040715
  Receipt Date: 20040525
  Transmission Date: 20050211
  Serious: Yes (Other)
  Sender: FDA-Public Use
  Company Number: PHBS2004JP07030

PATIENT
  Age: 78 Year
  Sex: Male
  Weight: 64 kg

DRUGS (28)
  1. DIOVAN [Suspect]
     Indication: ACUTE MYOCARDIAL INFARCTION
     Dosage: 80 MG/DAY
     Route: 048
     Dates: start: 20040414, end: 20040420
  2. DIOVAN [Suspect]
     Dosage: 160 MG/DAY
     Route: 048
     Dates: start: 20040421, end: 20040426
  3. CARVEDILOL [Concomitant]
     Indication: HYPERTENSION
     Dosage: 10 MG, UNK
     Route: 048
     Dates: start: 20020101, end: 20040426
  4. 8-HOUR BAYER [Concomitant]
     Indication: ACUTE MYOCARDIAL INFARCTION
     Dosage: 300 MG, UNK
     Route: 048
     Dates: start: 20040414, end: 20040416
  5. TICLOPIDINE HCL [Concomitant]
     Indication: ACUTE MYOCARDIAL INFARCTION
     Dosage: 400 MG, UNK
     Route: 048
     Dates: start: 20040414, end: 20040424
  6. WARFARIN SODIUM [Concomitant]
     Indication: ATRIAL FIBRILLATION
     Dosage: 1 MG, UNK
     Route: 048
     Dates: start: 20040414
  7. WARFARIN SODIUM [Concomitant]
     Dosage: 1.5 MG, UNK
     Route: 048
  8. WARFARIN SODIUM [Concomitant]
     Dosage: 2 MG, UNK
     Route: 048
  9. LASIX [Concomitant]
     Indication: PULMONARY CONGESTION
     Dosage: 20 MG, UNK
     Route: 048
     Dates: start: 20040414
  10. LASIX [Concomitant]
     Dosage: 1 DF, UNK
     Route: 042
     Dates: start: 20040419
  11. LASIX [Concomitant]
     Dosage: 3 DF, UNK
     Route: 042
  12. LASIX [Concomitant]
     Dosage: 4 DF, UNK
     Route: 042
  13. LASIX [Concomitant]
     Dosage: 6 DF, UNK
     Route: 042
  14. LASIX [Concomitant]
     Dosage: 4 DF, UNK
     Route: 042
  15. LASIX [Concomitant]
     Dosage: 2 DF, UNK
     Route: 042
     Dates: end: 20040512
  16. NORVASC [Concomitant]
     Indication: HYPERTENSION
     Dosage: 5 MG, UNK
     Route: 048
     Dates: start: 20040421
  17. ALLOPURINOL [Concomitant]
     Indication: GOUT
     Dosage: 100 MG, UNK
     Route: 048
     Dates: start: 20040430
  18. ISOSORBIDE MONONITRATE [Concomitant]
     Dosage: 96 ML, UNK
     Route: 042
     Dates: start: 20040414
  19. ISOSORBIDE MONONITRATE [Concomitant]
     Dosage: 192 ML, UNK
     Route: 042
     Dates: end: 20040424
  20. SIGMART [Concomitant]
     Dosage: 2 DF, UNK
     Route: 042
     Dates: start: 20040414, end: 20040418
  21. CEFOTIAM HYDROCHLORIDE [Concomitant]
     Dosage: 1 G, UNK
     Route: 042
     Dates: start: 20040414
  22. CEFOTIAM HYDROCHLORIDE [Concomitant]
     Dosage: 2 G, UNK
     Route: 042
     Dates: end: 20040418
  23. HEPARIN [Concomitant]
     Dosage: 10000 IU, UNK
     Route: 042
     Dates: start: 20040414, end: 20040510
  24. UNASYN [Concomitant]
     Dosage: 4 DF, UNK
     Route: 042
     Dates: start: 20040419, end: 20040425
  25. LOXONIN [Concomitant]
     Dosage: 1 DF, UNK
     Route: 048
     Dates: start: 20040416, end: 20040418
  26. CATABON [Concomitant]
     Dosage: 72 ML, UNK
     Route: 042
     Dates: start: 20040418, end: 20040506
  27. NITROGLYCERIN [Concomitant]
     Dosage: 96 ML, UNK
     Route: 042
     Dates: start: 20040424, end: 20040510
  28. HANP [Concomitant]
     Dosage: 5 MG, UNK
     Route: 042
     Dates: start: 20040425, end: 20040512

REACTIONS (6)
  - BLOOD CREATININE INCREASED [None]
  - CREATININE RENAL CLEARANCE DECREASED [None]
  - GOUT [None]
  - OLIGURIA [None]
  - PYREXIA [None]
  - RENAL FAILURE ACUTE [None]
